FAERS Safety Report 17534114 (Version 1)
Quarter: 2020Q1

REPORT INFORMATION
  Report Type: Report from Study
  Country: US (occurrence: US)
  Receive Date: 20200312
  Receipt Date: 20200312
  Transmission Date: 20200409
  Serious: Yes (Hospitalization)
  Sender: FDA-Public Use
  Company Number: US-BAYER-2020-041098

PATIENT
  Age: 66 Year
  Sex: Male
  Weight: 94.33 kg

DRUGS (3)
  1. ADEMPAS [Suspect]
     Active Substance: RIOCIGUAT
     Indication: PULMONARY ARTERIAL HYPERTENSION
     Dosage: 2.5 MG, TID
     Route: 048
  2. WARFARIN [Concomitant]
     Active Substance: WARFARIN
     Dosage: UNK
  3. ADEMPAS [Suspect]
     Active Substance: RIOCIGUAT
     Indication: PULMONARY ARTERIAL HYPERTENSION
     Dosage: UNK
     Dates: start: 20191003

REACTIONS (6)
  - Hypersensitivity [None]
  - Blood electrolytes abnormal [None]
  - International normalised ratio increased [None]
  - Dehydration [None]
  - Internal haemorrhage [None]
  - Angioplasty [None]

NARRATIVE: CASE EVENT DATE: 201912
